FAERS Safety Report 22622548 (Version 3)
Quarter: 2024Q3

REPORT INFORMATION
  Report Type: Spontaneous
  Country: US (occurrence: US)
  Receive Date: 20230621
  Receipt Date: 20240722
  Transmission Date: 20241017
  Serious: No
  Sender: ASTELLAS
  Company Number: US-ASTELLAS-2023US007461

PATIENT
  Age: 8 Year
  Sex: Male

DRUGS (2)
  1. MIRABEGRON [Suspect]
     Active Substance: MIRABEGRON
     Indication: Neurogenic bladder
     Dosage: UNK UNK, UNKNOWN FREQ.
     Route: 065
     Dates: start: 2021
  2. SOLIFENACIN [Suspect]
     Active Substance: SOLIFENACIN
     Indication: Neurogenic bladder
     Dosage: UNK UNK, UNKNOWN FREQ.
     Route: 065
     Dates: start: 2021

REACTIONS (1)
  - Priapism [Unknown]
